APPROVED DRUG PRODUCT: PROPRANOLOL HYDROCHLORIDE
Active Ingredient: PROPRANOLOL HYDROCHLORIDE
Strength: 10MG
Dosage Form/Route: TABLET;ORAL
Application: A070232 | Product #001
Applicant: TEVA PHARMACEUTICALS USA INC
Approved: Oct 7, 1987 | RLD: No | RS: No | Type: DISCN